FAERS Safety Report 5151760-6 (Version None)
Quarter: 2006Q4

REPORT INFORMATION
  Report Type: 
  Country: None (occurrence: None)
  Receive Date: 20061108
  Receipt Date: 20061018
  Transmission Date: 20070319
  Serious: Yes (Hospitalization)
  Sender: FDA-Public Use
  Company Number: IN200610003205

PATIENT
  Age: 61 Year
  Sex: Female

DRUGS (2)
  1. FORTEO [Suspect]
     Indication: OSTEOPOROSIS
     Dosage: 20 MCG, DAILY (1/D), SUBCUTANEOUS
     Route: 058
     Dates: start: 20060906
  2. FORTEO [Concomitant]

REACTIONS (7)
  - ABDOMINAL PAIN [None]
  - ANOREXIA [None]
  - DEPRESSION [None]
  - FALL [None]
  - HAEMATEMESIS [None]
  - HAEMOGLOBIN DECREASED [None]
  - STOMACH DISCOMFORT [None]
